FAERS Safety Report 17706418 (Version 1)
Quarter: 2020Q2

REPORT INFORMATION
  Report Type: Spontaneous
  Country: GB (occurrence: GB)
  Receive Date: 20200424
  Receipt Date: 20200424
  Transmission Date: 20200714
  Serious: Yes (Hospitalization)
  Sender: FDA-Public Use
  Company Number: GB-PERRIGO-20GB005421

PATIENT

DRUGS (1)
  1. ZANTAC [Suspect]
     Active Substance: RANITIDINE HYDROCHLORIDE
     Indication: PRODUCT USED FOR UNKNOWN INDICATION
     Dosage: 2 DF(TABLET)
     Route: 065

REACTIONS (6)
  - Jaundice [Unknown]
  - Fear of death [Unknown]
  - Faeces discoloured [Unknown]
  - Product complaint [Unknown]
  - Malaise [Unknown]
  - Chromaturia [Unknown]
